FAERS Safety Report 7785493-4 (Version None)
Quarter: 2011Q3

REPORT INFORMATION
  Report Type: 
  Country: None (occurrence: None)
  Receive Date: 20110929
  Receipt Date: 20110914
  Transmission Date: 20111222
  Serious: Yes (Hospitalization)
  Sender: FDA-Public Use
  Company Number: PHHY2011FR85548

PATIENT
  Sex: Male

DRUGS (7)
  1. AMOXICILLIN [Suspect]
     Indication: SUPERINFECTION BACTERIAL
     Dosage: 1 DF, TID
     Dates: start: 20110819, end: 20110822
  2. ACETAMINOPHEN [Concomitant]
     Indication: PAIN
     Dosage: 1 DF, TID
     Dates: start: 20110813, end: 20110823
  3. NEBIVOLOL HCL [Concomitant]
     Dosage: 5 MG, QD
  4. PREDNISONE [Concomitant]
     Dosage: 10 MG, QD
  5. MYFORTIC [Concomitant]
     Dosage: 720 MG, DAILY
  6. ESIDRIX [Concomitant]
     Indication: HYPERTENSION
     Dosage: 1 DF, QD
     Dates: start: 20110201, end: 20110821
  7. NEORAL [Concomitant]
     Dosage: 0-125 MG

REACTIONS (5)
  - MYELOCYTOSIS [None]
  - NEUTROPENIA [None]
  - AGRANULOCYTOSIS [None]
  - MONOCYTE COUNT DECREASED [None]
  - LEUKOPENIA [None]
